FAERS Safety Report 19927835 (Version 4)
Quarter: 2022Q2

REPORT INFORMATION
  Report Type: Report from Study
  Country: US (occurrence: US)
  Receive Date: 20211007
  Receipt Date: 20220526
  Transmission Date: 20220721
  Serious: No
  Sender: FDA-Public Use
  Company Number: US-NOVARTISTESTPH-NVSC2021US229001

PATIENT
  Sex: Male

DRUGS (3)
  1. ENTRESTO [Suspect]
     Active Substance: SACUBITRIL\VALSARTAN
     Indication: Product used for unknown indication
     Dosage: UNK
     Route: 048
  2. ENTRESTO [Suspect]
     Active Substance: SACUBITRIL\VALSARTAN
     Dosage: 1 DOSAGE FORM, BID (97/103 MG)
     Route: 048
  3. CARVEDILOL [Concomitant]
     Active Substance: CARVEDILOL
     Indication: Product used for unknown indication
     Dosage: UNK (INCREASE IN CARVEDILOL)
     Route: 065

REACTIONS (8)
  - Myalgia [Unknown]
  - Brain natriuretic peptide increased [Unknown]
  - Weight decreased [Unknown]
  - Affective disorder [Unknown]
  - Brain natriuretic peptide decreased [Unknown]
  - Arthralgia [Unknown]
  - Headache [Unknown]
  - Asthenia [Unknown]
